FAERS Safety Report 4576789-8 (Version None)
Quarter: 2005Q1

REPORT INFORMATION
  Report Type: 
  Country: None (occurrence: None)
  Receive Date: 20050210
  Receipt Date: 20050203
  Transmission Date: 20050727
  Serious: Yes (Hospitalization)
  Sender: FDA-Public Use
  Company Number: US-JNJFOC-20050201731

PATIENT
  Sex: Female

DRUGS (5)
  1. DURAGESIC [Suspect]
     Route: 062
  2. DURAGESIC [Suspect]
     Route: 062
  3. MORPHINE [Concomitant]
     Indication: PAIN
     Route: 049
  4. LORCET-HD [Concomitant]
     Route: 049
  5. LORCET-HD [Concomitant]
     Indication: PAIN
     Route: 049

REACTIONS (2)
  - HYPERSOMNIA [None]
  - LETHARGY [None]
